FAERS Safety Report 20650126 (Version 1)
Quarter: 2022Q1

REPORT INFORMATION
  Report Type: Report from Study
  Country: DE (occurrence: DE)
  Receive Date: 20220329
  Receipt Date: 20220329
  Transmission Date: 20220424
  Serious: Yes (Death, Other)
  Sender: FDA-Public Use
  Company Number: DE-BAXTER-2012BAX023766

PATIENT
  Age: 39 Year
  Weight: 82 kg

DRUGS (10)
  1. ADVATE [Suspect]
     Active Substance: ANTIHEMOPHILIC FACTOR, HUMAN RECOMBINANT
     Indication: Factor VIII deficiency
     Dosage: 500IU (INTERNATIONAL UNIT)3X A WEEK
     Route: 042
     Dates: start: 20060720
  2. ADVATE [Suspect]
     Active Substance: ANTIHEMOPHILIC FACTOR, HUMAN RECOMBINANT
     Indication: Factor VIII deficiency
     Dosage: 500IU (INTERNATIONAL UNIT)3X A WEEK
     Route: 042
     Dates: start: 20060720
  3. ADVATE [Suspect]
     Active Substance: ANTIHEMOPHILIC FACTOR, HUMAN RECOMBINANT
     Indication: Factor VIII deficiency
     Dosage: 500IU (INTERNATIONAL UNIT)3X A WEEK
     Route: 042
     Dates: start: 20060720
  4. ADVATE [Suspect]
     Active Substance: ANTIHEMOPHILIC FACTOR, HUMAN RECOMBINANT
     Indication: Prophylaxis
  5. ADVATE [Suspect]
     Active Substance: ANTIHEMOPHILIC FACTOR, HUMAN RECOMBINANT
     Indication: Prophylaxis
  6. ADVATE [Suspect]
     Active Substance: ANTIHEMOPHILIC FACTOR, HUMAN RECOMBINANT
     Indication: Prophylaxis
  7. ARCOXIA [Concomitant]
     Active Substance: ETORICOXIB
     Indication: Pain
     Dosage: 60 MILLIGRAM
     Route: 048
     Dates: start: 20070523
  8. TRAMADOL [Concomitant]
     Active Substance: TRAMADOL
     Indication: Pain
     Dosage: 100MILLIGRAM1X A DAY
     Dates: start: 20120605, end: 201208
  9. AMITRIPTYLINE [Concomitant]
     Active Substance: AMITRIPTYLINE
     Indication: Pain
     Dosage: 50MILLIGRAM1X A DAY
     Route: 048
     Dates: start: 20120605, end: 201208
  10. FENTANYL [Concomitant]
     Active Substance: FENTANYL
     Indication: Pain
     Dosage: 50MICROGRAMAS NEEDED
     Route: 062
     Dates: start: 201208

REACTIONS (1)
  - Death [Fatal]

NARRATIVE: CASE EVENT DATE: 20121109
